FAERS Safety Report 17928749 (Version 1)
Quarter: 2020Q2

REPORT INFORMATION
  Report Type: Spontaneous
  Country: CN (occurrence: CN)
  Receive Date: 20200623
  Receipt Date: 20200623
  Transmission Date: 20200714
  Serious: Yes (Other)
  Sender: FDA-Public Use
  Company Number: ALC2020CN004674

PATIENT
  Age: 72 Year
  Sex: Female

DRUGS (2)
  1. FLUORESCITE [Suspect]
     Active Substance: FLUORESCEIN SODIUM
     Indication: DRUG THERAPY
     Dosage: 5.000 ML, QD
     Route: 041
     Dates: start: 20200507, end: 20200507
  2. INDOCYANINE GREEN. [Suspect]
     Active Substance: INDOCYANINE GREEN
     Indication: SYMPTOMATIC TREATMENT
     Dosage: 25.000 MG, QD
     Route: 041
     Dates: start: 20200507, end: 20200507

REACTIONS (2)
  - Asthenia [Recovering/Resolving]
  - Paralysis [Recovering/Resolving]

NARRATIVE: CASE EVENT DATE: 20200508
